FAERS Safety Report 4637699-0 (Version None)
Quarter: 2005Q2

REPORT INFORMATION
  Report Type: 
  Country: None (occurrence: None)
  Receive Date: 20050325
  Receipt Date: 20041124
  Transmission Date: 20051028
  Serious: No
  Sender: FDA-Public Use
  Company Number: USA041184637

PATIENT
  Age: 60 Year
  Sex: Female

DRUGS (5)
  1. FORTEO [Suspect]
     Indication: OSTEOPOROSIS
     Dates: start: 20041116, end: 20041119
  2. XANAX (ALPRAZOLAM DUM) [Concomitant]
  3. CALCIUM GLUCONATE [Concomitant]
  4. VITAMINS NOS [Concomitant]
  5. ACIDOPHILUS [Concomitant]

REACTIONS (2)
  - ASTHENIA [None]
  - FATIGUE [None]
